FAERS Safety Report 8225153-9 (Version None)
Quarter: 2012Q1

REPORT INFORMATION
  Report Type: 
  Country: None (occurrence: None)
  Receive Date: 20120307
  Receipt Date: 20090706
  Transmission Date: 20120608
  Serious: No
  Sender: FDA-Public Use
  Company Number: PHEH2009US07397

PATIENT

DRUGS (1)
  1. AFINITOR [Suspect]

REACTIONS (1)
  - CHEST PAIN [None]
